FAERS Safety Report 9152802 (Version 2)
Quarter: 2013Q1

REPORT INFORMATION
  Report Type: Spontaneous
  Country: FR (occurrence: FR)
  Receive Date: 20130309
  Receipt Date: 20130319
  Transmission Date: 20140127
  Serious: Yes (Hospitalization)
  Sender: FDA-Public Use
  Company Number: FR-ABBOTT-13X-056-1059348-00

PATIENT
  Age: 64 None
  Sex: Female

DRUGS (3)
  1. NAXY [Suspect]
     Indication: BRONCHITIS
     Dates: start: 20071116, end: 20071122
  2. NAXY [Suspect]
     Route: 048
     Dates: start: 20120704, end: 20120704
  3. MESTINON [Suspect]
     Indication: MYASTHENIA GRAVIS
     Route: 048
     Dates: start: 200701

REACTIONS (7)
  - Diplopia [Recovered/Resolved]
  - Myasthenia gravis [Recovering/Resolving]
  - Glossodynia [Unknown]
  - Anxiety [Unknown]
  - Dysarthria [Unknown]
  - Muscle spasms [Unknown]
  - Ocular discomfort [Unknown]
